FAERS Safety Report 6418670-5 (Version None)
Quarter: 2009Q4

REPORT INFORMATION
  Report Type: 
  Country: None (occurrence: None)
  Receive Date: 20091026
  Receipt Date: 20091013
  Transmission Date: 20100525
  Serious: Yes (Other)
  Sender: FDA-Public Use
  Company Number: ADR39522009

PATIENT
  Age: 57 Year
  Sex: Female

DRUGS (1)
  1. SIMVASTATIN [Suspect]
     Indication: HYPERLIPIDAEMIA
     Dosage: 20 MG ORAL
     Route: 048
     Dates: start: 20080502, end: 20080915

REACTIONS (4)
  - ALOPECIA [None]
  - DEPRESSION [None]
  - LIBIDO DECREASED [None]
  - MYALGIA [None]
